FAERS Safety Report 8564254-2 (Version None)
Quarter: 2012Q3

REPORT INFORMATION
  Report Type: 
  Country: None (occurrence: None)
  Receive Date: 20120803
  Receipt Date: 20120731
  Transmission Date: 20120928
  Serious: Yes (Death)
  Sender: FDA-Public Use
  Company Number: US-JNJFOC-20120301781

PATIENT

DRUGS (3)
  1. DOXORUBICIN HYDROCHLORIDE [Suspect]
     Dosage: FOR UPTO 6 CYCLES
     Route: 065
  2. DOXORUBICIN HYDROCHLORIDE [Suspect]
     Indication: SARCOMA
     Dosage: FOR UPTO 6 CYCLES
     Route: 042
  3. PLACEBO [Suspect]
     Indication: SARCOMA
     Dosage: FOR UPTO 6 CYCLES
     Route: 065

REACTIONS (1)
  - GASTROINTESTINAL HAEMORRHAGE [None]
